FAERS Safety Report 20502168 (Version 1)
Quarter: 2022Q1

REPORT INFORMATION
  Report Type: Spontaneous
  Country: US (occurrence: US)
  Receive Date: 20220222
  Receipt Date: 20220222
  Transmission Date: 20220424
  Serious: No
  Sender: FDA-Public Use
  Company Number: US-SA-SAC20220217000039

PATIENT
  Age: 58 Year
  Sex: Female

DRUGS (7)
  1. DUPIXENT [Suspect]
     Active Substance: DUPILUMAB
     Indication: Dermatitis atopic
     Dosage: 300 MG , QOW
     Route: 058
     Dates: start: 20200601, end: 20220127
  2. PREDNISONE [Concomitant]
     Active Substance: PREDNISONE
     Indication: Swelling of eyelid
  3. PREDNISONE [Concomitant]
     Active Substance: PREDNISONE
     Indication: Sunburn
  4. PREDNISONE [Concomitant]
     Active Substance: PREDNISONE
     Indication: Pruritus
  5. PREDNISONE [Concomitant]
     Active Substance: PREDNISONE
     Indication: Rash erythematous
  6. PREDNISONE [Concomitant]
     Active Substance: PREDNISONE
     Indication: Swelling face
  7. PREDNISONE [Concomitant]
     Active Substance: PREDNISONE
     Indication: Skin burning sensation

REACTIONS (6)
  - Swelling of eyelid [Unknown]
  - Sunburn [Unknown]
  - Pruritus [Unknown]
  - Rash erythematous [Unknown]
  - Swelling face [Unknown]
  - Skin burning sensation [Unknown]

NARRATIVE: CASE EVENT DATE: 20220113
